APPROVED DRUG PRODUCT: LOTEPREDNOL ETABONATE
Active Ingredient: LOTEPREDNOL ETABONATE
Strength: 0.5%
Dosage Form/Route: SUSPENSION/DROPS;OPHTHALMIC
Application: A215204 | Product #001 | TE Code: AB
Applicant: PADAGIS US LLC
Approved: Jan 29, 2025 | RLD: No | RS: No | Type: RX